FAERS Safety Report 20442075 (Version 2)
Quarter: 2022Q3

REPORT INFORMATION
  Report Type: Spontaneous
  Country: US (occurrence: US)
  Receive Date: 20220208
  Receipt Date: 20220720
  Transmission Date: 20221027
  Serious: Yes (Death, Other)
  Sender: FDA-Public Use
  Company Number: US-BRISTOL-MYERS SQUIBB COMPANY-BMS-2022-016602

PATIENT
  Age: 40 Year
  Sex: Male

DRUGS (12)
  1. ELIQUIS [Suspect]
     Active Substance: APIXABAN
     Indication: Product used for unknown indication
     Dosage: 5 MILLIGRAM, BID
     Route: 048
     Dates: start: 20210825
  2. LIPITOR [Concomitant]
     Active Substance: ATORVASTATIN CALCIUM
     Indication: Product used for unknown indication
     Dosage: 1 TAB EVERY NIGHT AT BEDTIME
     Route: 048
     Dates: start: 20210719
  3. COREG [Concomitant]
     Active Substance: CARVEDILOL
     Indication: Product used for unknown indication
     Dosage: 1 TAB TWICE A DAY WITH MEALS; 3 REFILLS
     Route: 048
     Dates: start: 20211019
  4. LANOXIN [Concomitant]
     Active Substance: DIGOXIN
     Indication: Product used for unknown indication
     Dosage: 1 TAB DAILY; 3 REFILLS
     Route: 048
     Dates: start: 20210914
  5. INSPRA [Concomitant]
     Active Substance: EPLERENONE
     Indication: Product used for unknown indication
     Dosage: 1 TAB DAILY; 3 REFILLS
     Route: 048
     Dates: start: 20210908
  6. LASIX [Concomitant]
     Active Substance: FUROSEMIDE
     Indication: Product used for unknown indication
     Dosage: 1 TAB TWICE DAILY; 3 REFILLS
     Route: 048
     Dates: start: 20210825
  7. APRESOLINE HYDROCHLORIDE [Concomitant]
     Active Substance: HYDRALAZINE HYDROCHLORIDE
     Indication: Product used for unknown indication
     Dosage: 3 TAB EVERY 8 HOURS; 3 REFILLS
     Route: 048
     Dates: start: 20210825
  8. IMDUR [Concomitant]
     Active Substance: ISOSORBIDE MONONITRATE
     Indication: Product used for unknown indication
     Dosage: 1 TAB EVERY MORNING; 3 REFILLS
     Route: 048
     Dates: start: 20210825
  9. MAGNESIUM OXIDE [Concomitant]
     Active Substance: MAGNESIUM OXIDE
     Indication: Product used for unknown indication
     Dosage: 2 TAB TWICE DAILY; 5 REFILLS
     Route: 048
     Dates: start: 20210928
  10. GLUCOPHAGE [Concomitant]
     Active Substance: METFORMIN HYDROCHLORIDE
     Indication: Product used for unknown indication
     Dosage: 1 TAB TWICE DAILY WITH MEALS; 0 REFILLS
     Route: 048
     Dates: start: 20211119
  11. REMERON [Concomitant]
     Active Substance: MIRTAZAPINE
     Indication: Product used for unknown indication
     Dosage: 1 TAB ONCE EVERY NIGHT AT BEDTIME; 0 REFILLS
     Route: 048
     Dates: start: 20211119
  12. THERA-M [Concomitant]
     Indication: Product used for unknown indication
     Dosage: DOSE 9 MG AND IRON 400 MCG; 1 TAB WITH SUPPER
     Route: 048
     Dates: start: 20211119

REACTIONS (1)
  - Sudden cardiac death [Fatal]

NARRATIVE: CASE EVENT DATE: 20211122
